FAERS Safety Report 7488925-4 (Version None)
Quarter: 2011Q2

REPORT INFORMATION
  Report Type: 
  Country: None (occurrence: None)
  Receive Date: 20110518
  Receipt Date: 20110418
  Transmission Date: 20111010
  Serious: No
  Sender: FDA-Public Use
  Company Number: US-BAYER-2011-034361

PATIENT
  Sex: Female
  Weight: 52.154 kg

DRUGS (1)
  1. ALEVE (CAPLET) [Suspect]
     Indication: ANALGESIC THERAPY
     Dosage: 1 DF EVERY 8 HOURS
     Route: 048
     Dates: start: 20110301, end: 20110301

REACTIONS (1)
  - PAIN [None]
